FAERS Safety Report 12580246 (Version 1)
Quarter: 2016Q3

REPORT INFORMATION
  Report Type: Report from Study
  Country: US (occurrence: US)
  Receive Date: 20160721
  Receipt Date: 20160721
  Transmission Date: 20161109
  Serious: Yes (Other)
  Sender: FDA-Public Use
  Company Number: US-BAYER-2016-141423

PATIENT
  Age: 74 Year
  Sex: Female

DRUGS (1)
  1. STIVARGA [Suspect]
     Active Substance: REGORAFENIB
     Indication: ESSENTIAL HYPERTENSION
     Dosage: 120 MG, QD
     Route: 048
     Dates: start: 20160609

REACTIONS (5)
  - Mucosal infection [Not Recovered/Not Resolved]
  - Mucosal inflammation [Not Recovered/Not Resolved]
  - Pharyngitis [Recovering/Resolving]
  - Feeding disorder [Recovering/Resolving]
  - Off label use [None]

NARRATIVE: CASE EVENT DATE: 20160609
